FAERS Safety Report 5435969-X (Version None)
Quarter: 2007Q3

REPORT INFORMATION
  Report Type: 
  Country: None (occurrence: None)
  Receive Date: 20070831
  Receipt Date: 20070819
  Transmission Date: 20080115
  Serious: No
  Sender: FDA-Public Use
  Company Number: A0666469A

PATIENT
  Age: 5 Month

DRUGS (1)
  1. ALLI [Suspect]
     Route: 048

REACTIONS (3)
  - DIARRHOEA [None]
  - DRUG EXPOSURE VIA BREAST MILK [None]
  - PHARMACEUTICAL PRODUCT COMPLAINT [None]
